FAERS Safety Report 5223988-8 (Version None)
Quarter: 2007Q1

REPORT INFORMATION
  Report Type: 
  Country: None (occurrence: None)
  Receive Date: 20070130
  Receipt Date: 20070126
  Transmission Date: 20070707
  Serious: Yes (Other)
  Sender: FDA-Public Use
  Company Number: FR-GLAXOSMITHKLINE-B0456061A

PATIENT
  Sex: Male

DRUGS (3)
  1. ZELITREX [Suspect]
     Indication: PROPHYLAXIS
     Dosage: 500MG TWICE PER DAY
     Route: 048
     Dates: start: 20070101
  2. BACTRIM [Concomitant]
     Indication: PROPHYLAXIS URINARY TRACT INFECTION
  3. VITAMINE B [Concomitant]

REACTIONS (3)
  - BLOOD UREA INCREASED [None]
  - HALLUCINATION, VISUAL [None]
  - INSOMNIA [None]
